FAERS Safety Report 9934707 (Version 1)
Quarter: 2014Q1

REPORT INFORMATION
  Report Type: Report from Study
  Country: JP (occurrence: JP)
  Receive Date: 20140228
  Receipt Date: 20140228
  Transmission Date: 20141002
  Serious: Yes (Hospitalization, Other)
  Sender: FDA-Public Use
  Company Number: JP-TAKEDA-2014TJP001906

PATIENT
  Age: 62 Year
  Sex: Male
  Weight: 84 kg

DRUGS (7)
  1. ALOGLIPTIN [Suspect]
     Indication: TYPE 2 DIABETES MELLITUS
     Dosage: 25 MG, QD
     Route: 048
     Dates: start: 20111220
  2. BLOPRESS TABLETS 4 [Concomitant]
     Dosage: UNK
     Route: 048
  3. GLUCOBAY [Concomitant]
     Indication: TYPE 2 DIABETES MELLITUS
     Dosage: 300 MG, 1 DAYS
     Route: 048
  4. METGLUCO [Concomitant]
     Indication: TYPE 2 DIABETES MELLITUS
     Dosage: 500 MG, 1 DAYS
     Route: 048
     Dates: start: 20120414
  5. PARIET [Concomitant]
     Dosage: UNK
     Route: 048
  6. CRESTOR [Concomitant]
     Dosage: UNK
     Route: 048
  7. MUCOSTA [Concomitant]
     Dosage: UNK
     Route: 048

REACTIONS (1)
  - Papillary thyroid cancer [Recovered/Resolved with Sequelae]
